FAERS Safety Report 8229196-0 (Version None)
Quarter: 2012Q1

REPORT INFORMATION
  Report Type: 
  Country: None (occurrence: None)
  Receive Date: 20120322
  Receipt Date: 20120314
  Transmission Date: 20120608
  Serious: Yes (Hospitalization)
  Sender: FDA-Public Use
  Company Number: US-BAYER-2011-080603

PATIENT
  Age: 21 Year
  Sex: Female
  Weight: 47.166 kg

DRUGS (10)
  1. CHLORHEXIDINE GLUCONATE [Concomitant]
     Dosage: 0.12 %, UNK
     Route: 048
  2. AMOXICILLIN [Concomitant]
     Dosage: 500 MG, UNK
     Route: 048
  3. TOPAMAX [Concomitant]
     Route: 048
  4. YAZ [Suspect]
     Indication: CONTRACEPTION
     Dosage: UNK
     Dates: start: 20070601, end: 20080501
  5. HYDROCODONE BITARTRATE AND ACETAMINOPHEN [Concomitant]
     Route: 048
  6. YAZ [Suspect]
     Indication: PREMENSTRUAL SYNDROME
  7. OXYCODONE HCL [Concomitant]
  8. ADDERALL 5 [Concomitant]
     Route: 048
  9. YAZ [Suspect]
     Indication: ACNE
     Dosage: UNK
     Dates: start: 20090601, end: 20100101
  10. METHYLPREDNISOLONE [Concomitant]
     Dosage: 4 MG, UNK
     Route: 048

REACTIONS (6)
  - PAIN [None]
  - CEREBROVASCULAR ACCIDENT [None]
  - GENERAL PHYSICAL HEALTH DETERIORATION [None]
  - EMOTIONAL DISTRESS [None]
  - ANHEDONIA [None]
  - ANXIETY [None]
